FAERS Safety Report 9937148 (Version 1)
Quarter: 2014Q1

REPORT INFORMATION
  Report Type: Spontaneous
  Country: FR (occurrence: FR)
  Receive Date: 20140301
  Receipt Date: 20140301
  Transmission Date: 20141002
  Serious: Yes (Hospitalization)
  Sender: FDA-Public Use
  Company Number: PHHY2014FR021498

PATIENT
  Age: 54 Year
  Sex: Male

DRUGS (3)
  1. OXALIPLATIN [Suspect]
     Indication: ADENOCARCINOMA OF COLON
     Dosage: 460 MG/M2, UNK
  2. LEUCOVORIN [Concomitant]
     Indication: ADENOCARCINOMA OF COLON
     Route: 042
  3. 5-FU [Concomitant]
     Indication: ADENOCARCINOMA OF COLON
     Route: 042

REACTIONS (14)
  - Histiocytosis haematophagic [Recovered/Resolved]
  - Splenomegaly [Recovered/Resolved]
  - Septic shock [Recovered/Resolved]
  - Respiratory disorder [Recovered/Resolved]
  - Shock haemorrhagic [Recovered/Resolved]
  - Pyrexia [Recovered/Resolved]
  - Intra-abdominal haematoma [Recovered/Resolved]
  - Arterial haemorrhage [Recovered/Resolved]
  - Haemodynamic instability [Recovered/Resolved]
  - Enterococcal infection [Recovered/Resolved]
  - Bacterial infection [Recovered/Resolved]
  - Anaemia [Recovered/Resolved]
  - Thrombocytopenia [Recovered/Resolved]
  - Lung infection [Recovered/Resolved]
